FAERS Safety Report 6850890-8 (Version None)
Quarter: 2010Q3

REPORT INFORMATION
  Report Type: 
  Country: None (occurrence: None)
  Receive Date: 20100716
  Receipt Date: 20091223
  Transmission Date: 20110219
  Serious: No
  Sender: FDA-Public Use
  Company Number: US-PFIZER INC-2007089837

PATIENT
  Sex: Female
  Weight: 61.23 kg

DRUGS (4)
  1. CHANTIX [Suspect]
     Indication: SMOKING CESSATION THERAPY
     Dosage: 0.5 MG, 1X/DAY
     Dates: start: 20070701, end: 20080101
  2. ADVIL LIQUI-GELS [Concomitant]
     Indication: PAIN IN EXTREMITY
     Dosage: UNK
  3. LOPERAMIDE HYDROCHLORIDE [Concomitant]
     Indication: DIARRHOEA
     Dosage: UNK
  4. LOPERAMIDE HYDROCHLORIDE [Concomitant]
     Dosage: FREQUENCY: AS NEEDED,

REACTIONS (10)
  - COLD SWEAT [None]
  - DECREASED APPETITE [None]
  - DIARRHOEA [None]
  - FATIGUE [None]
  - FEELING JITTERY [None]
  - FLATULENCE [None]
  - HYPERHIDROSIS [None]
  - NAUSEA [None]
  - RETCHING [None]
  - VOMITING [None]
